FAERS Safety Report 8852562 (Version 1)
Quarter: 2012Q4

REPORT INFORMATION
  Report Type: 
  Country: FR (occurrence: FR)
  Receive Date: 20121022
  Receipt Date: 20121022
  Transmission Date: 20130627
  Serious: Yes (Hospitalization)
  Sender: FDA-Public Use
  Company Number: PHHY2012FR093295

PATIENT
  Sex: Male

DRUGS (7)
  1. NEORAL [Suspect]
     Indication: RENAL TRANSPLANT
     Dosage: 275 mg, Daily
     Route: 048
     Dates: start: 20120209
  2. BACTRIM [Suspect]
     Route: 048
     Dates: end: 20120629
  3. ROVALCYTE [Suspect]
     Route: 048
     Dates: end: 20120629
  4. CELLCEPT [Suspect]
     Indication: RENAL TRANSPLANT
     Route: 048
     Dates: end: 20120629
  5. CELLCEPT [Suspect]
     Dosage: 250 mg, BID
     Route: 048
  6. GLUCOPHAGE [Concomitant]
     Indication: DIABETES MELLITUS
  7. TACROLIMUS [Concomitant]

REACTIONS (2)
  - Aplasia [Recovered/Resolved]
  - Neutropenia [Recovered/Resolved]
